FAERS Safety Report 20301727 (Version 2)
Quarter: 2022Q1

REPORT INFORMATION
  Report Type: Report from Study
  Country: KR (occurrence: KR)
  Receive Date: 20220105
  Receipt Date: 20220111
  Transmission Date: 20220423
  Serious: Yes (Other)
  Sender: FDA-Public Use
  Company Number: KR-NOVARTISPH-NVSC2021KR277765

PATIENT
  Sex: Female
  Weight: 52.6 kg

DRUGS (59)
  1. RYDAPT [Suspect]
     Active Substance: MIDOSTAURIN
     Indication: Acute myeloid leukaemia
     Dosage: 50 MG, BID
     Route: 048
     Dates: start: 20211029, end: 20211111
  2. CYTARABINE [Concomitant]
     Active Substance: CYTARABINE
     Indication: Acute myeloid leukaemia
     Dosage: 310 MG
     Route: 042
     Dates: start: 20211020, end: 20211026
  3. CYTARABINE [Concomitant]
     Active Substance: CYTARABINE
     Dosage: 1530 MG
     Route: 042
     Dates: start: 20211129, end: 20211203
  4. DAUNORUBICIN HYDROCHLORIDE [Concomitant]
     Active Substance: DAUNORUBICIN HYDROCHLORIDE
     Indication: Acute myeloid leukaemia
     Dosage: 139.5 MG
     Route: 042
     Dates: start: 20211020, end: 20211022
  5. WINUF [Concomitant]
     Indication: Nutritional supplementation
     Dosage: 1085 ML
     Route: 042
     Dates: start: 20211027, end: 20211115
  6. SODIUM BICARBONATE [Concomitant]
     Active Substance: SODIUM BICARBONATE
     Indication: Prophylaxis
     Dosage: 40 ML
     Route: 065
     Dates: start: 20211020, end: 20211028
  7. SODIUM BICARBONATE [Concomitant]
     Active Substance: SODIUM BICARBONATE
     Dosage: 40 ML
     Route: 042
     Dates: start: 20211129, end: 20211203
  8. PIPERACILLIN SODIUM\TAZOBACTAM SODIUM [Concomitant]
     Active Substance: PIPERACILLIN SODIUM\TAZOBACTAM SODIUM
     Indication: Prophylaxis
     Dosage: 18 MG
     Route: 042
     Dates: start: 20211025, end: 20211027
  9. GENTAMICIN [Concomitant]
     Active Substance: GENTAMICIN
     Indication: Prophylaxis
     Dosage: 330 MG
     Route: 042
     Dates: start: 20211025, end: 20211027
  10. ZOYLEX [Concomitant]
     Indication: Prophylaxis
     Dosage: 250 MG
     Route: 042
     Dates: start: 20211020, end: 20211114
  11. ZOYLEX [Concomitant]
     Dosage: 250 MG
     Route: 042
     Dates: start: 20211129, end: 202112
  12. ZOYLEX [Concomitant]
     Dosage: UNK
     Route: 065
  13. NOXAFIL [Concomitant]
     Active Substance: POSACONAZOLE
     Indication: Prophylaxis
     Dosage: 300 MG
     Route: 048
     Dates: start: 20211020, end: 20211114
  14. ZYPREXA [Concomitant]
     Active Substance: OLANZAPINE
     Indication: Sleep disorder
     Dosage: 10 MG
     Route: 048
     Dates: start: 20211021, end: 20211115
  15. ZYPREXA [Concomitant]
     Active Substance: OLANZAPINE
     Dosage: 10 MG
     Route: 048
     Dates: start: 20211129, end: 202112
  16. LAMINA-G [Concomitant]
     Indication: Gastrooesophageal reflux disease
     Dosage: 60 MG
     Route: 048
     Dates: start: 20211019, end: 20211031
  17. LAMINA-G [Concomitant]
     Dosage: 60 MG
     Route: 048
     Dates: start: 20211130, end: 202112
  18. ITOMED [Concomitant]
     Indication: Gastrooesophageal reflux disease
     Dosage: 150 MG
     Route: 048
     Dates: start: 2020, end: 20211103
  19. ALDRIN [Concomitant]
     Indication: Gastrooesophageal reflux disease
     Dosage: 1500 MG
     Route: 048
     Dates: start: 2020, end: 20211103
  20. LIPOACTIN [Concomitant]
     Indication: Hypercholesterolaemia
     Dosage: 10 MG
     Route: 048
     Dates: start: 2020, end: 20211103
  21. DEXAMETHASONE [Concomitant]
     Active Substance: DEXAMETHASONE
     Indication: Prophylaxis
     Dosage: 10 MG
     Route: 042
     Dates: start: 20211020, end: 20211027
  22. DEXAMETHASONE [Concomitant]
     Active Substance: DEXAMETHASONE
     Dosage: 10 MG
     Route: 042
     Dates: start: 20211129, end: 20211203
  23. SEROQUEL [Concomitant]
     Active Substance: QUETIAPINE FUMARATE
     Indication: Sleep disorder
     Dosage: 25 MG
     Route: 048
     Dates: start: 20211022, end: 20211028
  24. SEROQUEL [Concomitant]
     Active Substance: QUETIAPINE FUMARATE
     Dosage: 12.5 MG
     Route: 048
     Dates: start: 20211130, end: 20211203
  25. PREPENEM [Concomitant]
     Indication: Prophylaxis
     Dosage: 2000 MG
     Route: 042
     Dates: start: 20211028, end: 20211101
  26. PROPACETAMOL HYDROCHLORIDE [Concomitant]
     Active Substance: PROPACETAMOL HYDROCHLORIDE
     Indication: Febrile neutropenia
     Dosage: 1 MG
     Route: 042
     Dates: start: 20211016, end: 20211113
  27. PROPACETAMOL HYDROCHLORIDE [Concomitant]
     Active Substance: PROPACETAMOL HYDROCHLORIDE
     Dosage: UNK UNK, PRN (WHEN BT,S CHECKED ABOVE 38 DEGREE)
     Route: 065
     Dates: start: 20211029, end: 20211111
  28. FOTAGEL [Concomitant]
     Indication: Diarrhoea
     Dosage: 60 ML
     Route: 048
     Dates: start: 20211029, end: 20211105
  29. PHENIRAMINE [Concomitant]
     Active Substance: PHENIRAMINE
     Indication: Prophylaxis
     Dosage: 4 MG
     Route: 042
     Dates: start: 20211019, end: 20211113
  30. METOCLOPRAMIDE HYDROCHLORIDE [Concomitant]
     Active Substance: METOCLOPRAMIDE HYDROCHLORIDE
     Indication: Nausea
     Dosage: 10 MG
     Route: 042
     Dates: start: 20211031, end: 20211031
  31. PINAVERIUM BROMIDE [Concomitant]
     Active Substance: PINAVERIUM BROMIDE
     Indication: Abdominal pain
     Dosage: 150 MG
     Route: 048
     Dates: start: 20211101, end: 20211108
  32. LIDOCAINE HYDROCHLORIDE [Concomitant]
     Active Substance: LIDOCAINE HYDROCHLORIDE
     Indication: Bone marrow disorder
     Dosage: 10 ML
     Route: 058
     Dates: start: 20211018, end: 20211112
  33. PETHIDIN HCL [Concomitant]
     Indication: Bone marrow disorder
     Dosage: 25 MG
     Route: 042
     Dates: start: 20211102, end: 20211112
  34. K-CONTIN CONTINUS [Concomitant]
     Indication: Electrolyte imbalance
     Dosage: 1800 MG
     Route: 048
     Dates: start: 20211102, end: 20211120
  35. INVANZ [Concomitant]
     Active Substance: ERTAPENEM SODIUM
     Indication: Prophylaxis
     Dosage: UNK
     Route: 065
     Dates: start: 20211102, end: 20211107
  36. LENOGRASTIM [Concomitant]
     Active Substance: LENOGRASTIM
     Indication: Febrile neutropenia
     Dosage: 302 UG
     Route: 042
     Dates: start: 20211102, end: 20211111
  37. LENOGRASTIM [Concomitant]
     Active Substance: LENOGRASTIM
     Indication: Prophylaxis
     Dosage: 244 UG
     Route: 042
     Dates: start: 20211208, end: 202112
  38. TOBRA [Concomitant]
     Indication: Prophylaxis
     Dosage: 300 MG
     Route: 042
     Dates: start: 20211103, end: 20211114
  39. POTASSIUM CHLORIDE [Concomitant]
     Active Substance: POTASSIUM CHLORIDE
     Indication: Electrolyte imbalance
     Dosage: 20 ML
     Route: 042
     Dates: start: 20211101, end: 20211114
  40. POTASSIUM CHLORIDE [Concomitant]
     Active Substance: POTASSIUM CHLORIDE
     Dosage: 20 ML
     Route: 042
     Dates: start: 20211128, end: 20211213
  41. LOPERAMIDE [Concomitant]
     Active Substance: LOPERAMIDE
     Indication: Diarrhoea
     Dosage: 6 MG
     Route: 048
     Dates: start: 20211104, end: 20211104
  42. RACECADOTRIL [Concomitant]
     Active Substance: RACECADOTRIL
     Indication: Diarrhoea
     Dosage: 300 MG
     Route: 048
     Dates: start: 20211105, end: 20211105
  43. TRAMADOL HYDROCHLORIDE [Concomitant]
     Active Substance: TRAMADOL HYDROCHLORIDE
     Indication: Headache
     Dosage: 100 MG
     Route: 042
     Dates: start: 20211107, end: 20211108
  44. MEROPENEM [Concomitant]
     Active Substance: MEROPENEM
     Indication: Prophylaxis
     Dosage: 3 G
     Route: 042
     Dates: start: 20211109, end: 20211114
  45. ERDOSTEINE [Concomitant]
     Active Substance: ERDOSTEINE
     Indication: Cough
     Dosage: 600 MG
     Route: 048
     Dates: start: 20211110, end: 20211110
  46. LASIX [Concomitant]
     Active Substance: FUROSEMIDE
     Indication: Intraosseous access placement
     Dosage: 10 MG
     Route: 042
     Dates: start: 20211111, end: 20211111
  47. VASELINE PURE [Concomitant]
     Active Substance: PETROLATUM
     Indication: Haemorrhoids
     Dosage: 10 G (APPLY)
     Route: 065
     Dates: start: 20211112, end: 20211112
  48. FRESOFOL [Concomitant]
     Indication: Paraesthesia
     Dosage: 70 MG
     Route: 042
     Dates: start: 20211112, end: 20211112
  49. LEVODROPROPIZINE [Concomitant]
     Active Substance: LEVODROPROPIZINE
     Indication: Cough
     Dosage: 180 MG
     Route: 048
     Dates: start: 20211115, end: 20211122
  50. YAL [Concomitant]
     Indication: Paraesthesia
     Dosage: 67.7 ML
     Route: 054
     Dates: start: 20211112, end: 20211112
  51. EPS [Concomitant]
     Indication: Acute myeloid leukaemia
     Dosage: 230 MG
     Route: 042
     Dates: start: 20211129, end: 20211201
  52. RAMOSETRON HYDROCHLORIDE [Concomitant]
     Active Substance: RAMOSETRON HYDROCHLORIDE
     Indication: Prophylaxis
     Dosage: 0.3 MG
     Route: 042
     Dates: start: 20211129, end: 20211203
  53. CIPROCTAN [Concomitant]
     Indication: Prophylaxis
     Dosage: 1000 MG
     Route: 048
     Dates: start: 20211129, end: 202112
  54. SULFAMETHOXAZOLE\TRIMETHOPRIM [Concomitant]
     Active Substance: SULFAMETHOXAZOLE\TRIMETHOPRIM
     Indication: Prophylaxis
     Dosage: UNK (800/160MG)
     Route: 048
     Dates: start: 20211129, end: 202112
  55. SPORANOX [Concomitant]
     Active Substance: ITRACONAZOLE
     Indication: Prophylaxis
     Dosage: 20 ML (SOLN)
     Route: 048
     Dates: start: 20211129, end: 202112
  56. LAFUTIDINE [Concomitant]
     Active Substance: LAFUTIDINE
     Indication: Gastrooesophageal reflux disease
     Dosage: 20 MG
     Route: 048
     Dates: start: 20211130, end: 202112
  57. LIPITOR [Concomitant]
     Active Substance: ATORVASTATIN CALCIUM
     Indication: Hypercholesterolaemia
     Dosage: 10 MG
     Route: 048
     Dates: start: 20211128, end: 202112
  58. COMBIFLEX PERI [Concomitant]
     Indication: Nutritional supplementation
     Dosage: 1100 ML
     Route: 042
     Dates: start: 20211203, end: 202112
  59. VITAMINS [Concomitant]
     Active Substance: VITAMINS
     Indication: Nutritional supplementation
     Dosage: UNK (1 VIA)
     Route: 042
     Dates: start: 20211203, end: 202112

REACTIONS (1)
  - Atrial fibrillation [Recovered/Resolved]

NARRATIVE: CASE EVENT DATE: 20211109
